FAERS Safety Report 17253903 (Version 1)
Quarter: 2020Q1

REPORT INFORMATION
  Report Type: Report from Study
  Country: CA (occurrence: CA)
  Receive Date: 20200109
  Receipt Date: 20200109
  Transmission Date: 20200409
  Serious: Yes (Other)
  Sender: FDA-Public Use
  Company Number: CA-JNJFOC-20191018231

PATIENT
  Age: 14 Year
  Sex: Male
  Weight: 95.5 kg

DRUGS (1)
  1. SIMPONI [Suspect]
     Active Substance: GOLIMUMAB
     Indication: CROHN^S DISEASE
     Dosage: STRENGTH = 50 MG
     Route: 058
     Dates: start: 20150811

REACTIONS (3)
  - Product use in unapproved indication [Unknown]
  - Abscess limb [Unknown]
  - Off label use [Unknown]

NARRATIVE: CASE EVENT DATE: 20150811
